FAERS Safety Report 4664028-9 (Version None)
Quarter: 2005Q2

REPORT INFORMATION
  Report Type: 
  Country: None (occurrence: None)
  Receive Date: 20050516
  Receipt Date: 20050516
  Transmission Date: 20051028
  Serious: Yes (Death)
  Sender: FDA-Public Use
  Company Number: None

PATIENT
  Age: 71 Year
  Sex: Female
  Weight: 49.8957 kg

DRUGS (1)
  1. NEXIUM [Suspect]
     Dosage: 40 MG
     Dates: start: 20021001, end: 20041201

REACTIONS (12)
  - ABDOMINAL PAIN [None]
  - CONSTIPATION [None]
  - GASTRIC NEOPLASM [None]
  - GASTROINTESTINAL DISORDER [None]
  - GASTROINTESTINAL STENOSIS [None]
  - HAEMATEMESIS [None]
  - LUNG NEOPLASM MALIGNANT [None]
  - MALAISE [None]
  - MASS [None]
  - NAUSEA [None]
  - VOMITING [None]
  - WEIGHT DECREASED [None]
